FAERS Safety Report 5276976-X (Version None)
Quarter: 2007Q1

REPORT INFORMATION
  Report Type: 
  Country: None (occurrence: None)
  Receive Date: 20070327
  Receipt Date: 20070126
  Transmission Date: 20070707
  Serious: No
  Sender: FDA-Public Use
  Company Number: US-BRISTOL-MYERS SQUIBB COMPANY-13601190

PATIENT
  Age: 84 Year
  Sex: Male

DRUGS (8)
  1. ORENCIA [Suspect]
     Indication: RHEUMATOID ARTHRITIS
     Route: 042
     Dates: start: 20060919
  2. FLONASE [Suspect]
     Indication: RHINITIS ALLERGIC
     Dosage: DOSAGE FORM=SPRAY
     Route: 045
  3. METHOTREXATE [Concomitant]
  4. FOLIC ACID [Concomitant]
  5. ZINC [Concomitant]
  6. TYLENOL [Concomitant]
  7. SULFASALAZINE [Concomitant]
  8. TIMOPTIC DROPS [Concomitant]
     Route: 047

REACTIONS (2)
  - AGEUSIA [None]
  - ANOSMIA [None]
